FAERS Safety Report 24529808 (Version 7)
Quarter: 2025Q3

REPORT INFORMATION
  Report Type: Report from Study
  Country: US (occurrence: US)
  Receive Date: 20241021
  Receipt Date: 20250918
  Transmission Date: 20251021
  Serious: Yes (Other)
  Sender: SUNOVION
  Company Number: US-SUMITOMO PHARMA SWITZERLAND GMBH-2024SPA003909

PATIENT
  Age: 66 Year
  Sex: Male

DRUGS (4)
  1. ORGOVYX [Suspect]
     Active Substance: RELUGOLIX
     Indication: Prostate cancer
     Route: 048
     Dates: start: 20241004, end: 20241004
  2. ORGOVYX [Suspect]
     Active Substance: RELUGOLIX
     Dosage: 120 MG, QD
     Route: 048
     Dates: start: 20241005
  3. ERLEADA [Suspect]
     Active Substance: APALUTAMIDE
     Indication: Product used for unknown indication
  4. PHENAZOPYRIDINE [Concomitant]
     Active Substance: PHENAZOPYRIDINE
     Indication: Product used for unknown indication

REACTIONS (9)
  - Hepatitis C [Unknown]
  - Vision blurred [Unknown]
  - Dysuria [Not Recovered/Not Resolved]
  - Nocturia [Unknown]
  - Alopecia [Unknown]
  - Hypertension [Unknown]
  - Fatigue [Unknown]
  - Hot flush [Unknown]
  - Gynaecomastia [Unknown]
